FAERS Safety Report 9351929 (Version 1)
Quarter: 2013Q2

REPORT INFORMATION
  Report Type: Spontaneous
  Country: CN (occurrence: CN)
  Receive Date: 20130617
  Receipt Date: 20130617
  Transmission Date: 20140414
  Serious: Yes (Other)
  Sender: FDA-Public Use
  Company Number: CN-GLAXOSMITHKLINE-B0899862A

PATIENT
  Age: 4 Year
  Sex: Male
  Weight: 23 kg

DRUGS (1)
  1. BACTROBAN [Suspect]
     Indication: BACTERIAL INFECTION
     Dosage: .3G TWICE PER DAY
     Route: 061
     Dates: start: 20120120, end: 20120120

REACTIONS (2)
  - Asthma [Recovered/Resolved]
  - Bronchospasm [Recovered/Resolved]
